FAERS Safety Report 12427505 (Version 1)
Quarter: 2016Q2

REPORT INFORMATION
  Report Type: Spontaneous
  Country: US (occurrence: US)
  Receive Date: 20160602
  Receipt Date: 20160602
  Transmission Date: 20160815
  Serious: Yes (Hospitalization, Other)
  Sender: FDA-Public Use
  Company Number: US-SHIRE-US201606356

PATIENT
  Age: 59 Year
  Sex: Female
  Weight: 82.54 kg

DRUGS (4)
  1. NORMAL SALINE [Concomitant]
     Active Substance: SODIUM CHLORIDE
     Indication: FLUID REPLACEMENT
     Dosage: 1 L, 1X/WEEK WITH MAGNESIUM
     Route: 042
  2. GATTEX [Suspect]
     Active Substance: TEDUGLUTIDE\WATER
     Indication: CROHN^S DISEASE
  3. GATTEX [Suspect]
     Active Substance: TEDUGLUTIDE\WATER
     Indication: SHORT-BOWEL SYNDROME
     Dosage: 0.37 ML, 1X/DAY:QD
     Route: 058
     Dates: start: 20150209
  4. MAGNESIUM [Concomitant]
     Active Substance: MAGNESIUM
     Indication: FLUID REPLACEMENT
     Dosage: 1 L, 1X/WEEK WITH NS
     Route: 042

REACTIONS (1)
  - Device related infection [Unknown]

NARRATIVE: CASE EVENT DATE: 201605
